FAERS Safety Report 7435549-0 (Version None)
Quarter: 2011Q2

REPORT INFORMATION
  Report Type: 
  Country: None (occurrence: None)
  Receive Date: 20110418
  Receipt Date: 20110408
  Transmission Date: 20111010
  Serious: Yes (Hospitalization, Other)
  Sender: FDA-Public Use
  Company Number: UTC-006231

PATIENT
  Age: 76 Year
  Sex: Female
  Weight: 61.36 kg

DRUGS (4)
  1. REVATIO [Concomitant]
  2. DIURETICS (DIURETICS) [Concomitant]
  3. REMODULIN [Suspect]
     Dosage: 83.52 UG/KG (0.058 UG/KG,1 IN 1 MIN),INTRAVENOUS
     Route: 042
     Dates: start: 20090721
  4. COUMADIN [Concomitant]

REACTIONS (6)
  - PAIN [None]
  - DIARRHOEA [None]
  - PAIN IN EXTREMITY [None]
  - MASTICATION DISORDER [None]
  - ARTHRALGIA [None]
  - DEVICE BREAKAGE [None]
